FAERS Safety Report 4390897-6 (Version None)
Quarter: 2004Q2

REPORT INFORMATION
  Report Type: 
  Country: None (occurrence: None)
  Receive Date: 20040630
  Receipt Date: 20040616
  Transmission Date: 20050107
  Serious: Yes (Other)
  Sender: FDA-Public Use
  Company Number: 170509

PATIENT
  Age: 60 Year
  Sex: Female
  Weight: 77.1115 kg

DRUGS (12)
  1. AVONEX [Suspect]
     Indication: MULTIPLE SCLEROSIS
     Dosage: 30 MCG QW IM
     Route: 030
     Dates: start: 19980701
  2. NOVANTRONE ^LEDERLE^ [Concomitant]
  3. PROVIGIL [Concomitant]
  4. ZOLOFT [Concomitant]
  5. SOLU-MEDROL [Concomitant]
  6. DITROPAN [Concomitant]
  7. LASIX [Concomitant]
  8. K-DUR 10 [Concomitant]
  9. PRILOSEC [Concomitant]
  10. ZYBAN [Concomitant]
  11. HIPREX [Concomitant]
  12. AMBIEN [Concomitant]

REACTIONS (22)
  - AORTIC VALVE INCOMPETENCE [None]
  - AORTIC VALVE STENOSIS [None]
  - BLOOD PRESSURE SYSTOLIC DECREASED [None]
  - CELLULITIS [None]
  - CHRONIC OBSTRUCTIVE AIRWAYS DISEASE [None]
  - DILATATION ATRIAL [None]
  - EMPHYSEMA [None]
  - FAECAL OCCULT BLOOD POSITIVE [None]
  - FOOT OPERATION [None]
  - GASTRITIS [None]
  - HAEMORRHOIDS [None]
  - HIATUS HERNIA [None]
  - IRON DEFICIENCY ANAEMIA [None]
  - LEUKOCYTOSIS [None]
  - MITRAL VALVE INCOMPETENCE [None]
  - MULTIPLE SCLEROSIS [None]
  - MYELOPROLIFERATIVE DISORDER [None]
  - OESOPHAGITIS [None]
  - PNEUMOCYSTIS CARINII PNEUMONIA [None]
  - PULMONARY HYPERTENSION [None]
  - THROMBOCYTHAEMIA [None]
  - TRICUSPID VALVE INCOMPETENCE [None]
